FAERS Safety Report 6420025-4 (Version None)
Quarter: 2009Q4

REPORT INFORMATION
  Report Type: 
  Country: None (occurrence: None)
  Receive Date: 20091029
  Receipt Date: 20090210
  Transmission Date: 20100525
  Serious: No
  Sender: FDA-Public Use
  Company Number: A0767977A

PATIENT
  Age: 47 Year
  Sex: Female

DRUGS (4)
  1. IMITREX [Suspect]
     Indication: MIGRAINE
     Route: 045
     Dates: start: 20090130, end: 20090201
  2. NEXIUM [Concomitant]
  3. FIORICET [Concomitant]
  4. CLONAZEPAM [Concomitant]

REACTIONS (1)
  - DRUG INEFFECTIVE [None]
